FAERS Safety Report 9476537 (Version 1)
Quarter: 2013Q3

REPORT INFORMATION
  Report Type: Spontaneous
  Country: US (occurrence: None)
  Receive Date: 20130823
  Receipt Date: 20130823
  Transmission Date: 20140515
  Serious: No
  Sender: FDA-Public Use
  Company Number: None

PATIENT
  Age: 41 Year
  Sex: Female
  Weight: 67.13 kg

DRUGS (2)
  1. PREVACID [Suspect]
     Indication: DYSPHAGIA
     Dosage: 7 DAYS CHEST PAIN
     Route: 048
     Dates: start: 20130801
  2. PANTOPRAZOLE [Suspect]
     Indication: GASTROOESOPHAGEAL REFLUX DISEASE
     Dosage: 40G 7 QD  DIARRHEA
     Route: 048
     Dates: start: 20130722

REACTIONS (1)
  - Chest pain [None]
